FAERS Safety Report 24652752 (Version 6)
Quarter: 2025Q4

REPORT INFORMATION
  Report Type: Report from Study
  Country: CA (occurrence: CA)
  Receive Date: 20241122
  Receipt Date: 20251126
  Transmission Date: 20260117
  Serious: Yes (Hospitalization, Other)
  Sender: VERITY PHARMACEUTICALS INC.
  Company Number: CA-VER-202400548

PATIENT
  Age: 74 Year

DRUGS (17)
  1. TRELSTAR [Suspect]
     Active Substance: TRIPTORELIN PAMOATE
     Indication: Prostate cancer
     Dosage: 11.25 MILLIGRAM, ONCE / 3 MONTHS,?POWDER FOR PROLONGED-RELEASE SUSPENSION FOR INJEC
     Route: 030
     Dates: start: 20210901, end: 20210901
  2. TRELSTAR [Suspect]
     Active Substance: TRIPTORELIN PAMOATE
     Indication: Prostate cancer
     Dosage: 11.25 MILLIGRAM, ONCE / 3 MONTHS,?POWDER FOR PROLONGED-RELEASE SUSPENSION FOR INJEC
     Route: 030
     Dates: start: 20211201, end: 20211201
  3. TRELSTAR [Suspect]
     Active Substance: TRIPTORELIN PAMOATE
     Indication: Prostate cancer
     Dosage: 11.25 MILLIGRAM, ONCE / 3 MONTHS,?POWDER FOR PROLONGED-RELEASE SUSPENSION FOR INJEC
     Route: 030
     Dates: start: 20220302, end: 20220302
  4. TRELSTAR [Suspect]
     Active Substance: TRIPTORELIN PAMOATE
     Indication: Prostate cancer
     Dosage: 11.25 MILLIGRAM, ONCE / 3 MONTHS,?POWDER FOR PROLONGED-RELEASE SUSPENSION FOR INJEC
     Route: 030
     Dates: start: 20220830, end: 20220830
  5. TRELSTAR [Suspect]
     Active Substance: TRIPTORELIN PAMOATE
     Indication: Prostate cancer
     Dosage: 11.25 MILLIGRAM, ONCE / 3 MONTHS,?POWDER FOR PROLONGED-RELEASE SUSPENSION FOR INJEC
     Route: 030
     Dates: start: 20221130, end: 20221130
  6. TRELSTAR [Suspect]
     Active Substance: TRIPTORELIN PAMOATE
     Indication: Prostate cancer
     Dosage: 11.25 MILLIGRAM, ONCE / 3 MONTHS,?POWDER FOR PROLONGED-RELEASE SUSPENSION FOR INJEC
     Route: 030
     Dates: start: 20230225, end: 20230225
  7. TRELSTAR [Suspect]
     Active Substance: TRIPTORELIN PAMOATE
     Indication: Prostate cancer
     Dosage: 11.25 MILLIGRAM, ONCE / 3 MONTHS,?POWDER FOR PROLONGED-RELEASE SUSPENSION FOR INJEC
     Route: 030
     Dates: start: 20230525, end: 20230525
  8. TRELSTAR [Suspect]
     Active Substance: TRIPTORELIN PAMOATE
     Indication: Prostate cancer
     Dosage: 11.25 MILLIGRAM, ONCE / 3 MONTHS,?POWDER FOR PROLONGED-RELEASE SUSPENSION FOR INJEC
     Route: 030
     Dates: start: 20230824, end: 20230824
  9. TRELSTAR [Suspect]
     Active Substance: TRIPTORELIN PAMOATE
     Indication: Prostate cancer
     Dosage: 11.25 MILLIGRAM, ONCE / 3 MONTHS,?POWDER FOR PROLONGED-RELEASE SUSPENSION FOR INJEC
     Route: 030
     Dates: start: 20231122, end: 20231122
  10. TRELSTAR [Suspect]
     Active Substance: TRIPTORELIN PAMOATE
     Indication: Prostate cancer
     Dosage: 11.25 MILLIGRAM, ONCE / 3 MONTHS,?POWDER FOR PROLONGED-RELEASE SUSPENSION FOR INJEC
     Route: 030
     Dates: start: 20220531, end: 20220531
  11. TRELSTAR [Suspect]
     Active Substance: TRIPTORELIN PAMOATE
     Indication: Prostate cancer
     Dosage: POWDER FOR PROLONGED-RELEASE SUSPENSION FOR INJECT
     Route: 030
     Dates: start: 20251021, end: 20251021
  12. TRELSTAR [Suspect]
     Active Substance: TRIPTORELIN PAMOATE
     Indication: Prostate cancer
     Dosage: START DATE: 07-AUG-24??11.25 MILLIGRAM, ONCE / 3 MONTHS,?POWDER FOR PROLONGED-RELEASE SUSPENSION FOR
     Route: 030
     Dates: end: 20240807
  13. TRELSTAR [Suspect]
     Active Substance: TRIPTORELIN PAMOATE
     Indication: Prostate cancer
     Dosage: START DATE: 14-FEB-24??11.25 MILLIGRAM, ONCE / 3 MONTHS,?POWDER FOR PROLONGED-RELEASE SUSPENSION FOR
     Route: 030
     Dates: start: 20240214, end: 20240214
  14. TRELSTAR [Suspect]
     Active Substance: TRIPTORELIN PAMOATE
     Indication: Prostate cancer
     Dosage: START DATE: 15-MAY-24??11.25 MILLIGRAM, ONCE / 3 MONTHS,?POWDER FOR PROLONGED-RELEASE SUSPENSION FOR
     Route: 030
     Dates: end: 20240515
  15. TRELSTAR [Suspect]
     Active Substance: TRIPTORELIN PAMOATE
     Indication: Prostate cancer
     Dosage: START DATE: 22/JAN/2025?11.25 MILLIGRAM, ONCE / 3 MONTHS,?POWDER FOR PROLONGED-RELEASE SUSPENSION FO
     Route: 030
     Dates: end: 20250122
  16. TRELSTAR [Suspect]
     Active Substance: TRIPTORELIN PAMOATE
     Indication: Prostate cancer
     Dosage: START DATE: 24-APR-2025;?POWDER FOR PROLONGED-RELEASE SUSPENSION FOR INJECT
     Route: 030
     Dates: end: 20250424
  17. TRELSTAR [Suspect]
     Active Substance: TRIPTORELIN PAMOATE
     Indication: Prostate cancer
     Dosage: START DATE: 30-OCT-24??11.25 MILLIGRAM, ONCE / 3 MONTHS,?POWDER FOR PROLONGED-RELEASE SUSPENSION FOR
     Route: 030
     Dates: end: 20241030

REACTIONS (5)
  - Blood pressure increased [Unknown]
  - Prostate cancer metastatic [Not Recovered/Not Resolved]
  - Inappropriate schedule of product administration [Recovered/Resolved]
  - Hip fracture [Recovered/Resolved]
  - Hip arthroplasty [Unknown]

NARRATIVE: CASE EVENT DATE: 20240214
